FAERS Safety Report 13294034 (Version 2)
Quarter: 2017Q2

REPORT INFORMATION
  Report Type: Spontaneous
  Country: GB (occurrence: GB)
  Receive Date: 20170303
  Receipt Date: 20170424
  Transmission Date: 20170830
  Serious: Yes (Other)
  Sender: FDA-Public Use
  Company Number: GB-BAYER-2017-037152

PATIENT
  Sex: Male

DRUGS (1)
  1. XOFIGO [Suspect]
     Active Substance: RADIUM RA-223 DICHLORIDE
     Indication: PROSTATE CANCER
     Route: 042

REACTIONS (4)
  - Dysarthria [Recovered/Resolved]
  - Cerebral haemorrhage [None]
  - Diarrhoea [Recovered/Resolved]
  - Tongue paralysis [Recovered/Resolved]
